FAERS Safety Report 6738867-4 (Version None)
Quarter: 2010Q2

REPORT INFORMATION
  Report Type: 
  Country: None (occurrence: None)
  Receive Date: 20100520
  Receipt Date: 20100505
  Transmission Date: 20101027
  Serious: Yes (Other)
  Sender: FDA-Public Use
  Company Number: 09-AUR-09498

PATIENT
  Sex: Female

DRUGS (3)
  1. PAROXETINE HCL [Suspect]
     Indication: DEPRESSION
     Dates: start: 19980403, end: 20070301
  2. CIPRAMIL [Concomitant]
  3. SERTRALINE HYDROCHLORIDE [Concomitant]

REACTIONS (27)
  - AGITATION [None]
  - ANGER [None]
  - APATHY [None]
  - CONFUSIONAL STATE [None]
  - DECREASED INTEREST [None]
  - DEPRESSED MOOD [None]
  - DISTURBANCE IN ATTENTION [None]
  - DIZZINESS [None]
  - DRUG WITHDRAWAL SYNDROME [None]
  - FATIGUE [None]
  - FEAR [None]
  - HUNTINGTON'S CHOREA [None]
  - HYPERHIDROSIS [None]
  - IRRITABILITY [None]
  - LETHARGY [None]
  - MEMORY IMPAIRMENT [None]
  - MOOD SWINGS [None]
  - NEGATIVE THOUGHTS [None]
  - PANIC ATTACK [None]
  - PARAESTHESIA [None]
  - PARANOIA [None]
  - SEXUAL DYSFUNCTION [None]
  - SUICIDAL IDEATION [None]
  - TEARFULNESS [None]
  - TREMOR [None]
  - VERTIGO [None]
  - VISUAL IMPAIRMENT [None]
